FAERS Safety Report 4907134-3 (Version None)
Quarter: 2006Q1

REPORT INFORMATION
  Report Type: 
  Country: None (occurrence: None)
  Receive Date: 20060206
  Receipt Date: 20060124
  Transmission Date: 20060701
  Serious: Yes (Disabling, Other)
  Sender: FDA-Public Use
  Company Number: 2004118746

PATIENT
  Age: 62 Year
  Sex: Male
  Weight: 83 kg

DRUGS (10)
  1. CARDYL (ATORVASTATIN) [Suspect]
     Indication: ILL-DEFINED DISORDER
     Dosage: 80 MG (80 MG 1 IN 1 D) ORAL
     Route: 048
     Dates: start: 20030522, end: 20030901
  2. OMEPRAZOLE [Concomitant]
  3. DILTIAZEM [Concomitant]
  4. ASPIRIN [Concomitant]
  5. DICLOFENAC SODIUM [Concomitant]
  6. PRAVASTATIN [Concomitant]
  7. RAMIPRIL [Concomitant]
  8. TORSEMIDE [Concomitant]
  9. FLUPENTIXOL (FLUPENTIXOL) [Concomitant]
  10. LORAZEPAM [Concomitant]

REACTIONS (12)
  - AMYOTROPHY [None]
  - BACK PAIN [None]
  - BLOOD UREA INCREASED [None]
  - DENERVATION ATROPHY [None]
  - DEPRESSION [None]
  - MEDICAL DEVICE COMPLICATION [None]
  - NERVE COMPRESSION [None]
  - NEUROMYOPATHY [None]
  - PARALYSIS [None]
  - PERSONALITY DISORDER [None]
  - POLYNEUROPATHY TOXIC [None]
  - TREMOR [None]
